FAERS Safety Report 11374938 (Version 1)
Quarter: 2015Q3

REPORT INFORMATION
  Report Type: Spontaneous
  Country: US (occurrence: None)
  Receive Date: 20150812
  Receipt Date: 20150812
  Transmission Date: 20151125
  Serious: Yes (Life-Threatening)
  Sender: FDA-Public Use
  Company Number: None

PATIENT
  Age: 51 Year
  Sex: Male
  Weight: 74.1 kg

DRUGS (2)
  1. VARENICLINE [Suspect]
     Active Substance: VARENICLINE
     Indication: SMOKING CESSATION THERAPY
     Route: 048
     Dates: start: 20150511, end: 20150601
  2. VARENICLINE [Suspect]
     Active Substance: VARENICLINE
     Dosage: MG    PO
     Route: 048
     Dates: start: 20150511, end: 20150601

REACTIONS (2)
  - Overdose [None]
  - Suicide attempt [None]

NARRATIVE: CASE EVENT DATE: 20150601
